FAERS Safety Report 18455638 (Version 22)
Quarter: 2022Q1

REPORT INFORMATION
  Report Type: Spontaneous
  Country: CA (occurrence: CA)
  Receive Date: 20201102
  Receipt Date: 20220319
  Transmission Date: 20220423
  Serious: Yes (Other)
  Sender: FDA-Public Use
  Company Number: CA-CELLTRION INC.-2020CA027697

PATIENT

DRUGS (47)
  1. INFLECTRA [Interacting]
     Active Substance: INFLIXIMAB-DYYB
     Indication: Colitis ulcerative
     Dosage: 800 MG, 0, 2, 6, THEN EVERY 8 WEEKS
     Route: 042
     Dates: start: 20200808, end: 20200915
  2. INFLECTRA [Interacting]
     Active Substance: INFLIXIMAB-DYYB
     Dosage: 800 MG, 0, 2, 6, THEN EVERY 8 WEEKS
     Route: 042
     Dates: start: 20200831
  3. INFLECTRA [Interacting]
     Active Substance: INFLIXIMAB-DYYB
     Dosage: 800 MG, 0, 2, 6, THEN EVERY 8 WEEKS
     Route: 042
     Dates: start: 20200915
  4. INFLECTRA [Interacting]
     Active Substance: INFLIXIMAB-DYYB
     Dosage: 800 MG, EVERY 4 WEEKS
     Route: 042
     Dates: start: 20201103, end: 20211108
  5. INFLECTRA [Interacting]
     Active Substance: INFLIXIMAB-DYYB
     Dosage: 800 MG, EVERY 4 WEEKS
     Route: 042
     Dates: start: 20201202
  6. INFLECTRA [Interacting]
     Active Substance: INFLIXIMAB-DYYB
     Dosage: 800 MG, EVERY 4 WEEKS
     Route: 042
     Dates: start: 20201230
  7. INFLECTRA [Interacting]
     Active Substance: INFLIXIMAB-DYYB
     Dosage: 800MG EVERY 4 WEEKS
     Route: 042
     Dates: start: 20201230
  8. INFLECTRA [Interacting]
     Active Substance: INFLIXIMAB-DYYB
     Dosage: 800 MG, EVERY 4 WEEKS
     Route: 042
     Dates: start: 20210125
  9. INFLECTRA [Interacting]
     Active Substance: INFLIXIMAB-DYYB
     Dosage: 800 MG, EVERY 4 WEEKS
     Route: 042
     Dates: start: 20210222
  10. INFLECTRA [Interacting]
     Active Substance: INFLIXIMAB-DYYB
     Dosage: 800 MG, EVERY 4 WEEKS
     Route: 042
     Dates: start: 20210322
  11. INFLECTRA [Interacting]
     Active Substance: INFLIXIMAB-DYYB
     Dosage: 800 MG, EVERY 4 WEEKS
     Route: 042
     Dates: start: 20210422
  12. INFLECTRA [Interacting]
     Active Substance: INFLIXIMAB-DYYB
     Dosage: 800 MG, EVERY 4 WEEKS
     Route: 042
     Dates: start: 20210520
  13. INFLECTRA [Interacting]
     Active Substance: INFLIXIMAB-DYYB
     Dosage: 800 MG, EVERY 4 WEEKS
     Route: 042
     Dates: start: 20210618
  14. INFLECTRA [Interacting]
     Active Substance: INFLIXIMAB-DYYB
     Dosage: 800 MG, EVERY 4 WEEKS
     Route: 042
     Dates: start: 20210715
  15. INFLECTRA [Interacting]
     Active Substance: INFLIXIMAB-DYYB
     Dosage: 800 MG, EVERY 4 WEEKS
     Route: 042
     Dates: start: 20210813
  16. INFLECTRA [Interacting]
     Active Substance: INFLIXIMAB-DYYB
     Dosage: 800 MG, EVERY 4 WEEKS
     Route: 042
     Dates: start: 20210907
  17. INFLECTRA [Interacting]
     Active Substance: INFLIXIMAB-DYYB
     Dosage: 800 MG, EVERY 4 WEEKS
     Route: 042
     Dates: start: 20211007
  18. INFLECTRA [Interacting]
     Active Substance: INFLIXIMAB-DYYB
     Dosage: 800 MG, EVERY 4 WEEKS
     Route: 042
     Dates: start: 20211108
  19. INFLECTRA [Interacting]
     Active Substance: INFLIXIMAB-DYYB
     Dosage: 800 MG, EVERY 4 WEEKS
     Route: 042
     Dates: start: 20211108
  20. INFLECTRA [Interacting]
     Active Substance: INFLIXIMAB-DYYB
     Dosage: 1200 MG, EVERY 4 WEEKS
     Route: 042
     Dates: start: 20211130
  21. INFLECTRA [Interacting]
     Active Substance: INFLIXIMAB-DYYB
     Dosage: 1200 MG, EVERY 4 WEEKS
     Route: 042
     Dates: start: 20211218
  22. INFLECTRA [Interacting]
     Active Substance: INFLIXIMAB-DYYB
     Dosage: 1200 MG, EVERY 4 WEEKS
     Route: 042
     Dates: start: 20220111
  23. INFLECTRA [Interacting]
     Active Substance: INFLIXIMAB-DYYB
     Dosage: 1200 MG, EVERY 4 WEEKS
     Route: 042
     Dates: start: 20220208
  24. INFLECTRA [Interacting]
     Active Substance: INFLIXIMAB-DYYB
     Dosage: 1200 MG, EVERY 4 WEEKS
     Route: 042
     Dates: start: 20220308
  25. FLAGYL [Interacting]
     Active Substance: METRONIDAZOLE\METRONIDAZOLE HYDROCHLORIDE
     Dosage: UNK
  26. FLAGYL [Interacting]
     Active Substance: METRONIDAZOLE\METRONIDAZOLE HYDROCHLORIDE
     Dosage: 1 DF
  27. TETRACYCLINE [Interacting]
     Active Substance: TETRACYCLINE
     Dosage: 1 DF
  28. ACETAMINOPHEN [Concomitant]
     Active Substance: ACETAMINOPHEN
     Indication: Premedication
     Dosage: 650 MG
     Route: 048
     Dates: start: 20200831, end: 20200831
  29. ACETAMINOPHEN [Concomitant]
     Active Substance: ACETAMINOPHEN
     Dosage: 650 MG
     Dates: start: 20210322, end: 20210322
  30. ACETAMINOPHEN [Concomitant]
     Active Substance: ACETAMINOPHEN
     Dosage: 650 MG
     Route: 048
     Dates: start: 20211130, end: 20211130
  31. DIPHENHYDRAMINE [Concomitant]
     Active Substance: DIPHENHYDRAMINE
     Indication: Premedication
     Dosage: 50 MG
     Route: 042
     Dates: start: 20200831, end: 20200831
  32. DIPHENHYDRAMINE [Concomitant]
     Active Substance: DIPHENHYDRAMINE
     Dosage: 50 MG
     Dates: start: 20200915, end: 20200915
  33. DIPHENHYDRAMINE [Concomitant]
     Active Substance: DIPHENHYDRAMINE
     Dosage: 50 MG
     Dates: start: 20210322, end: 20210322
  34. DIPHENHYDRAMINE [Concomitant]
     Active Substance: DIPHENHYDRAMINE
     Dosage: 50 MG
     Route: 048
     Dates: start: 20210715, end: 20210715
  35. DIPHENHYDRAMINE [Concomitant]
     Active Substance: DIPHENHYDRAMINE
     Dosage: 50 MG
     Route: 048
     Dates: start: 20210813, end: 20210813
  36. DIPHENHYDRAMINE [Concomitant]
     Active Substance: DIPHENHYDRAMINE
     Dosage: 50 MG
     Route: 048
     Dates: start: 20211130, end: 20211130
  37. HYDROCORTISONE [Concomitant]
     Active Substance: HYDROCORTISONE
     Indication: Premedication
     Dosage: 200 MG
     Route: 042
     Dates: start: 20200831, end: 20200831
  38. HYDROCORTISONE [Concomitant]
     Active Substance: HYDROCORTISONE
     Dosage: 200 MG
     Dates: start: 20200915, end: 20200915
  39. HYDROCORTISONE [Concomitant]
     Active Substance: HYDROCORTISONE
     Dosage: 200 MG
     Route: 042
     Dates: start: 20210322, end: 20210322
  40. HYDROCORTISONE [Concomitant]
     Active Substance: HYDROCORTISONE
     Dosage: 200 MG
     Route: 042
     Dates: start: 20211130, end: 20211130
  41. PREDNISONE [Concomitant]
     Active Substance: PREDNISONE
     Dosage: 1 DF (TAPERING FOR 8 WEEKS)
     Dates: start: 202007, end: 20211202
  42. MESALAMINE [Concomitant]
     Active Substance: MESALAMINE
     Dosage: UNK
  43. MESALAMINE [Concomitant]
     Active Substance: MESALAMINE
     Dosage: 40 MG, 40 MG TO BE STOPPED ON 02DEC2021
     Route: 048
     Dates: start: 20211202
  44. MESALAMINE [Concomitant]
     Active Substance: MESALAMINE
     Dosage: 1 DF (UNK DOSE)
  45. TYLENOL WITH CODEINE [Concomitant]
     Active Substance: ACETAMINOPHEN\CODEINE PHOSPHATE
     Indication: Pain
     Dosage: UNK, AS NEEDED
  46. TYLENOL [Concomitant]
     Active Substance: ACETAMINOPHEN
     Dosage: UNK
     Dates: start: 20200915, end: 20200915
  47. TYLENOL [Concomitant]
     Active Substance: ACETAMINOPHEN
     Dosage: 1 DF (UNK DOSE)

REACTIONS (23)
  - Haemorrhage [Not Recovered/Not Resolved]
  - Clostridium difficile infection [Not Recovered/Not Resolved]
  - Weight fluctuation [Unknown]
  - Drug level decreased [Unknown]
  - Off label use [Unknown]
  - Off label use [Unknown]
  - Off label use [Unknown]
  - Intentional product use issue [Unknown]
  - Inappropriate schedule of product administration [Unknown]
  - Product administration error [Unknown]
  - Heart rate irregular [Unknown]
  - Nausea [Recovered/Resolved]
  - Dizziness [Recovered/Resolved]
  - Hyperhidrosis [Recovered/Resolved]
  - Throat irritation [Recovered/Resolved]
  - Drug interaction [Unknown]
  - Condition aggravated [Not Recovered/Not Resolved]
  - Fatigue [Unknown]
  - Blood pressure increased [Unknown]
  - Arthropathy [Not Recovered/Not Resolved]
  - Arthralgia [Not Recovered/Not Resolved]
  - Skin disorder [Unknown]
  - Stress [Unknown]

NARRATIVE: CASE EVENT DATE: 20200101
